FAERS Safety Report 8618971-6 (Version None)
Quarter: 2012Q3

REPORT INFORMATION
  Report Type: 
  Country: None (occurrence: None)
  Receive Date: 20120824
  Receipt Date: 20120817
  Transmission Date: 20120928
  Serious: Yes (Other)
  Sender: FDA-Public Use
  Company Number: PHEH2012US016234

PATIENT
  Sex: Female

DRUGS (9)
  1. PRISTIQ [Concomitant]
     Dosage: 150 MG, QD
  2. DIOVAN HCT [Suspect]
     Dosage: 1 DF (160/25 MG), DAILY
  3. SYMBICORT [Concomitant]
     Dosage: 1 DF 160/4.5 MG), BID
  4. NUVIGIL [Concomitant]
     Dosage: 250 MG, QD
  5. ALLER-EZE [Concomitant]
     Dosage: 180 MG, QD
  6. MULTI-VITAMIN [Concomitant]
     Dosage: UNK UKN, QD
  7. AMANTADINE HCL [Concomitant]
     Dosage: 100 MG, QD
  8. GILENYA [Concomitant]
     Dosage: 0.5 MG, QD
  9. TOPIRAMATE [Concomitant]
     Dosage: 400 MG, QD

REACTIONS (2)
  - ASTHMA [None]
  - SLEEP APNOEA SYNDROME [None]
